FAERS Safety Report 9019231 (Version 1)
Quarter: 2013Q1

REPORT INFORMATION
  Report Type: Spontaneous
  Country: US (occurrence: US)
  Receive Date: 20130118
  Receipt Date: 20130118
  Transmission Date: 20140127
  Serious: Yes (Death)
  Sender: FDA-Public Use
  Company Number: US-ABBOTT-13P-163-1037211-00

PATIENT
  Age: 25 Year
  Sex: Male

DRUGS (9)
  1. ACETAMINOPHEN\HYDROCODONE [Suspect]
     Indication: PRODUCT USED FOR UNKNOWN INDICATION
  2. METOCLOPRAMIDE [Suspect]
     Indication: PRODUCT USED FOR UNKNOWN INDICATION
  3. METOCLOPRAMIDE [Suspect]
  4. METHYLENE-DIOXYMETHAMPHETAMINE [Suspect]
     Indication: PRODUCT USED FOR UNKNOWN INDICATION
  5. METHYLENE-DIOXYMETHAMPHETAMINE [Suspect]
  6. LYSERGIC ACID DIETHYLAMIDE [Suspect]
     Indication: PRODUCT USED FOR UNKNOWN INDICATION
  7. LYSERGIC ACID DIETHYLAMIDE [Suspect]
  8. CYCLOBENZAPRINE [Suspect]
     Indication: PRODUCT USED FOR UNKNOWN INDICATION
  9. CYCLOBENZAPRINE [Suspect]

REACTIONS (4)
  - Completed suicide [Fatal]
  - Cardio-respiratory arrest [Fatal]
  - Cardiac arrest [None]
  - Respiratory arrest [None]
